FAERS Safety Report 15803681 (Version 1)
Quarter: 2019Q1

REPORT INFORMATION
  Report Type: Spontaneous
  Country: US (occurrence: US)
  Receive Date: 20190109
  Receipt Date: 20190109
  Transmission Date: 20190417
  Serious: No
  Sender: FDA-Public Use
  Company Number: US-TEVA-2018-US-987732

PATIENT
  Sex: Female

DRUGS (1)
  1. AMLODIPINE W/VALSARTAN [Suspect]
     Active Substance: AMLODIPINE\VALSARTAN
     Indication: HYPERTENSION
     Dosage: FORM STRENGTH: AMLODIPINE 5 MG WITH VALSARTAN 160 MG
     Route: 065

REACTIONS (5)
  - Hypoaesthesia [Unknown]
  - Malaise [Unknown]
  - Dizziness [Unknown]
  - Blood test abnormal [Unknown]
  - Recalled product administered [Unknown]
